FAERS Safety Report 26130291 (Version 1)
Quarter: 2025Q4

REPORT INFORMATION
  Report Type: Spontaneous
  Country: CH (occurrence: CH)
  Receive Date: 20251208
  Receipt Date: 20251208
  Transmission Date: 20260117
  Serious: Yes (Life-Threatening, Hospitalization, Other)
  Sender: CHEPLAPHARM
  Company Number: None

PATIENT
  Age: 73 Year
  Sex: Male
  Weight: 75.8 kg

DRUGS (10)
  1. QUETIAPINE [Interacting]
     Active Substance: QUETIAPINE
     Dosage: DAILY DOSE: 100 MILLIGRAM
     Route: 048
     Dates: end: 20250527
  2. LORAZEPAM [Interacting]
     Active Substance: LORAZEPAM
     Route: 048
  3. ABILIFY [Interacting]
     Active Substance: ARIPIPRAZOLE
     Dosage: DAILY DOSE: 15 MILLIGRAM
     Route: 048
     Dates: end: 20250527
  4. RISPERDAL [Interacting]
     Active Substance: RISPERIDONE
     Dosage: DAILY DOSE: 1 MILLIGRAM
     Route: 048
     Dates: end: 20250527
  5. CANDESARTAN CILEXETIL [Concomitant]
     Active Substance: CANDESARTAN CILEXETIL
     Dosage: DAILY DOSE: 8 MILLIGRAM
     Route: 048
  6. NORVASC [Concomitant]
     Active Substance: AMLODIPINE BESYLATE
     Dosage: DAILY DOSE: 5 MILLIGRAM
     Route: 048
  7. BISOPROLOL FUMARATE [Concomitant]
     Active Substance: BISOPROLOL FUMARATE
     Dosage: DAILY DOSE: 2.5 MILLIGRAM
     Route: 048
  8. Imazol [Concomitant]
     Route: 061
  9. CARBOMER [Concomitant]
     Active Substance: CARBOMER
     Route: 047
  10. METFORMIN [Concomitant]
     Active Substance: METFORMIN HYDROCHLORIDE
     Dosage: DAILY DOSE: 1000 MILLIGRAM
     Route: 048

REACTIONS (9)
  - Disturbance in attention [Recovering/Resolving]
  - Muscle rigidity [Recovering/Resolving]
  - Malignant catatonia [Recovering/Resolving]
  - Hyperthermia [Recovering/Resolving]
  - Mutism [Recovering/Resolving]
  - Neuroleptic malignant syndrome [Recovering/Resolving]
  - CSF glucose increased [Recovering/Resolving]
  - CSF lactate increased [Recovering/Resolving]
  - CSF protein increased [Recovering/Resolving]

NARRATIVE: CASE EVENT DATE: 20250526
